FAERS Safety Report 8018700-3 (Version None)
Quarter: 2012Q1

REPORT INFORMATION
  Report Type: 
  Country: None (occurrence: None)
  Receive Date: 20120103
  Receipt Date: 20120103
  Transmission Date: 20120608
  Serious: Yes (Life-Threatening, Other)
  Sender: FDA-Public Use
  Company Number: None

PATIENT
  Age: 39 Year
  Sex: Female
  Weight: 108 kg

DRUGS (1)
  1. CYMBALTA [Suspect]
     Indication: DEPRESSION
     Dosage: 60MG
     Route: 048

REACTIONS (10)
  - VOMITING [None]
  - WITHDRAWAL SYNDROME [None]
  - TINNITUS [None]
  - NAUSEA [None]
  - NERVOUS SYSTEM DISORDER [None]
  - DIZZINESS [None]
  - HEADACHE [None]
  - FEELING ABNORMAL [None]
  - COLD SWEAT [None]
  - DIARRHOEA [None]
